FAERS Safety Report 9730622 (Version 2)
Quarter: 2014Q1

REPORT INFORMATION
  Report Type: Report from Study
  Country: FR (occurrence: FR)
  Receive Date: 20131205
  Receipt Date: 20140106
  Transmission Date: 20141002
  Serious: Yes (Death, Life-Threatening, Hospitalization)
  Sender: FDA-Public Use
  Company Number: FR-ROCHE-1313091

PATIENT
  Age: 50 Year
  Sex: Male
  Weight: 61 kg

DRUGS (10)
  1. RIBAVIRIN [Suspect]
     Indication: HEPATITIS C
     Route: 065
     Dates: start: 20130916, end: 20131020
  2. SOFOSBUVIR [Suspect]
     Indication: HEPATITIS C
     Route: 065
     Dates: start: 20130916, end: 20131118
  3. DACLATASVIR [Suspect]
     Indication: HEPATITIS C
     Route: 065
     Dates: start: 20131020, end: 20131118
  4. TRUVADA [Suspect]
     Indication: HIV INFECTION
     Route: 065
     Dates: end: 20131118
  5. ISENTRESS [Suspect]
     Indication: HIV INFECTION
     Route: 065
     Dates: start: 20131020
  6. CELLCEPT [Concomitant]
  7. NEORAL [Concomitant]
     Route: 065
     Dates: end: 20131028
  8. KALETRA [Concomitant]
     Route: 065
     Dates: end: 20131028
  9. ARIXTRA [Concomitant]
     Route: 065
     Dates: start: 201211, end: 20131028
  10. NORFLOXACIN [Concomitant]
     Route: 065
     Dates: start: 201308, end: 20131028

REACTIONS (3)
  - Cardiac failure acute [Fatal]
  - Pulmonary arterial hypertension [Fatal]
  - Cardiomyopathy [Fatal]
